FAERS Safety Report 9491806 (Version 1)
Quarter: 2013Q3

REPORT INFORMATION
  Report Type: Spontaneous
  Country: NO (occurrence: None)
  Receive Date: 20130827
  Receipt Date: 20130827
  Transmission Date: 20140515
  Serious: Yes (Life-Threatening)
  Sender: FDA-Public Use
  Company Number: NO-ALSI-201300212

PATIENT
  Age: 7 Decade
  Sex: Male

DRUGS (1)
  1. OXYGEN [Suspect]
     Indication: PRODUCT USED FOR UNKNOWN INDICATION
     Dosage: RESPIRATORY

REACTIONS (1)
  - Cardiac arrest [None]
